FAERS Safety Report 8019146-4 (Version None)
Quarter: 2011Q4

REPORT INFORMATION
  Report Type: 
  Country: None (occurrence: None)
  Receive Date: 20111229
  Receipt Date: 20111214
  Transmission Date: 20120403
  Serious: Yes (Hospitalization, Other)
  Sender: FDA-Public Use
  Company Number: CIP11001276

PATIENT
  Age: 76 Year
  Sex: Female

DRUGS (7)
  1. FOSAMAX [Suspect]
     Indication: OSTEOPOROSIS POSTMENOPAUSAL
     Dosage: 10 MG DAILY, ORAL
     Route: 048
     Dates: start: 19951229, end: 20020101
  2. COZAAR [Concomitant]
  3. ARTHROTEC /00372302/ (DICLOFENAC SODIUM) [Concomitant]
  4. ACTONEL [Suspect]
     Indication: OSTEOPENIA
     Dosage: 35 MG ONCE WEEKLY, ORAL
     Route: 048
     Dates: start: 20021030, end: 20021101
  5. CEPHALEXIN [Concomitant]
  6. DIDRONEL [Suspect]
     Indication: OSTEOPOROSIS
     Dosage: ORAL
     Route: 048
     Dates: end: 19951227
  7. BONIVA [Suspect]
     Indication: OSTEOPOROSIS
     Dosage: 150 MG ONCE MONTLY, ORAL
     Route: 048
     Dates: start: 20051229, end: 20090401

REACTIONS (24)
  - HAEMATOMA [None]
  - ANAEMIA POSTOPERATIVE [None]
  - OSTEOARTHRITIS [None]
  - HYSTERECTOMY [None]
  - FEMUR FRACTURE [None]
  - INTERVERTEBRAL DISC OPERATION [None]
  - BURSITIS [None]
  - ARTHRALGIA [None]
  - RADIOTHERAPY [None]
  - OEDEMA PERIPHERAL [None]
  - HYPERPARATHYROIDISM PRIMARY [None]
  - PARATHYROID TUMOUR BENIGN [None]
  - PAIN [None]
  - ABDOMINAL DISCOMFORT [None]
  - BREAST CANCER FEMALE [None]
  - PAIN IN EXTREMITY [None]
  - MUSCULAR WEAKNESS [None]
  - GAIT DISTURBANCE [None]
  - MYOPATHY [None]
  - LOW TURNOVER OSTEOPATHY [None]
  - STRESS FRACTURE [None]
  - FALL [None]
  - FRACTURE DISPLACEMENT [None]
  - HIATUS HERNIA [None]
